FAERS Safety Report 10003665 (Version 2)
Quarter: 2014Q1

REPORT INFORMATION
  Report Type: Spontaneous
  Country: US (occurrence: US)
  Receive Date: 20140312
  Receipt Date: 20140312
  Transmission Date: 20141002
  Serious: No
  Sender: FDA-Public Use
  Company Number: US-GILEAD-2012-0059359

PATIENT
  Sex: Female

DRUGS (2)
  1. LETAIRIS [Suspect]
     Indication: PULMONARY HYPERTENSION
     Dosage: 5 MG, UNK
     Route: 048
     Dates: start: 20120730
  2. LETAIRIS [Suspect]
     Indication: HEART DISEASE CONGENITAL

REACTIONS (7)
  - Abnormal sensation in eye [Unknown]
  - Tinnitus [Unknown]
  - Malaise [Unknown]
  - Ear swelling [Unknown]
  - Ear pruritus [Unknown]
  - Swelling [Unknown]
  - Pruritus [Unknown]
